FAERS Safety Report 9496930 (Version 2)
Quarter: 2013Q3

REPORT INFORMATION
  Report Type: Other
  Country: GB (occurrence: GB)
  Receive Date: 20130904
  Receipt Date: 20130923
  Transmission Date: 20140515
  Serious: Yes (Other)
  Sender: FDA-Public Use
  Company Number: GB-TARO PHARMACEUTICALS U.S.A., INC-2013SUN04553

PATIENT
  Age: 11 Year
  Sex: Male

DRUGS (3)
  1. CARBAMAZEPINE [Suspect]
     Indication: EPILEPSY
     Dosage: 100 MG, BID
     Route: 065
     Dates: start: 2011
  2. CARBAMAZEPINE [Suspect]
     Dosage: 300 MG, BID
     Route: 065
  3. MOVICOL [Concomitant]
     Dosage: 2 DF, BID
     Route: 065

REACTIONS (3)
  - Anxiety [Not Recovered/Not Resolved]
  - Epilepsy [Not Recovered/Not Resolved]
  - Compulsions [Not Recovered/Not Resolved]
